FAERS Safety Report 8619416-2 (Version None)
Quarter: 2012Q3

REPORT INFORMATION
  Report Type: 
  Country: None (occurrence: None)
  Receive Date: 20120824
  Receipt Date: 20120822
  Transmission Date: 20120928
  Serious: Yes (Hospitalization)
  Sender: FDA-Public Use
  Company Number: US-PFIZER INC-2012166144

PATIENT
  Age: 68 Year
  Sex: Male
  Weight: 77.098 kg

DRUGS (2)
  1. AMLODIPINE BESYLATE [Suspect]
     Indication: HYPERTENSION
     Dosage: 10 MG, DAILY
     Route: 048
     Dates: start: 20110101
  2. AMLODIPINE BESYLATE [Suspect]
     Dosage: 10 MG, DAILY
     Route: 048
     Dates: start: 20120101, end: 20120601

REACTIONS (5)
  - GAIT DISTURBANCE [None]
  - DIZZINESS [None]
  - BALANCE DISORDER [None]
  - DRUG INEFFECTIVE [None]
  - PRODUCT QUALITY ISSUE [None]
